FAERS Safety Report 23100002 (Version 1)
Quarter: 2023Q4

REPORT INFORMATION
  Report Type: Spontaneous
  Country: US (occurrence: US)
  Receive Date: 20231024
  Receipt Date: 20231024
  Transmission Date: 20240110
  Serious: No
  Sender: FDA-Public Use
  Company Number: US-PFIZER INC-202300336169

PATIENT
  Age: 30 Year
  Sex: Female

DRUGS (3)
  1. XELJANZ XR [Interacting]
     Active Substance: TOFACITINIB CITRATE
     Dosage: 11 MG
     Dates: start: 20231018
  2. HERBALS\TURMERIC [Interacting]
     Active Substance: HERBALS\TURMERIC
  3. DIETARY SUPPLEMENT\HERBALS [Interacting]
     Active Substance: DIETARY SUPPLEMENT\HERBALS

REACTIONS (1)
  - Drug interaction [Unknown]
